FAERS Safety Report 4951755-9 (Version None)
Quarter: 2006Q1

REPORT INFORMATION
  Report Type: 
  Country: None (occurrence: None)
  Receive Date: 20060323
  Receipt Date: 20060315
  Transmission Date: 20060701
  Serious: Yes (Other)
  Sender: FDA-Public Use
  Company Number: BE-GLAXOSMITHKLINE-B0416725A

PATIENT
  Age: 47 Year
  Sex: Male

DRUGS (1)
  1. ZINNAT [Suspect]
     Indication: SINUSITIS
     Dosage: 1500MG PER DAY
     Route: 048

REACTIONS (3)
  - CIRCULATORY COLLAPSE [None]
  - FRACTURE [None]
  - RASH GENERALISED [None]
